FAERS Safety Report 6502025-9 (Version None)
Quarter: 2009Q4

REPORT INFORMATION
  Report Type: 
  Country: None (occurrence: None)
  Receive Date: 20091216
  Receipt Date: 20091207
  Transmission Date: 20100525
  Serious: Yes (Other)
  Sender: FDA-Public Use
  Company Number: AR-ROCHE-674611

PATIENT
  Age: 81 Year
  Sex: Male

DRUGS (1)
  1. BEVACIZUMAB [Suspect]
     Dosage: CO-INDICATION: AGE RELATED MACULAR DEGENERATION
     Route: 031

REACTIONS (1)
  - ANTERIOR CHAMBER INFLAMMATION [None]
